FAERS Safety Report 4628194-3 (Version None)
Quarter: 2005Q2

REPORT INFORMATION
  Report Type: 
  Country: None (occurrence: None)
  Receive Date: 20050406
  Receipt Date: 20050328
  Transmission Date: 20051028
  Serious: Yes (Hospitalization, Other)
  Sender: FDA-Public Use
  Company Number: JP-NOVOPROD-243278

PATIENT
  Age: 51 Year
  Sex: Female

DRUGS (1)
  1. INNOLET 30R CHU [Suspect]
     Indication: DIABETES MELLITUS INSULIN-DEPENDENT
     Dosage: 8-32 IU
     Route: 058

REACTIONS (4)
  - ABDOMINAL PAIN UPPER [None]
  - DIABETIC KETOACIDOTIC HYPERGLYCAEMIC COMA [None]
  - RENAL FAILURE ACUTE [None]
  - RHABDOMYOLYSIS [None]
